FAERS Safety Report 6180577-9 (Version None)
Quarter: 2009Q2

REPORT INFORMATION
  Report Type: 
  Country: None (occurrence: None)
  Receive Date: 20090504
  Receipt Date: 20090504
  Transmission Date: 20091009
  Serious: Yes (Disabling)
  Sender: FDA-Public Use
  Company Number: None

PATIENT
  Age: 33 Year
  Sex: Female
  Weight: 88.4514 kg

DRUGS (7)
  1. LISINOPRIL [Suspect]
     Indication: HYPERTENSION
     Dosage: 1 DAILY ORAL
     Route: 048
     Dates: start: 20080701, end: 20090210
  2. REBIF [Concomitant]
  3. PROVIGIL [Concomitant]
  4. CITALOPRAM HYDROBROMIDE [Concomitant]
  5. TOPAMAX [Concomitant]
  6. ZYRTEC [Concomitant]
  7. MELANTONTIN [Concomitant]

REACTIONS (5)
  - COUGH [None]
  - DYSPNOEA [None]
  - HYPOPHAGIA [None]
  - INSOMNIA [None]
  - SPEECH DISORDER [None]
